FAERS Safety Report 5612502-0 (Version None)
Quarter: 2008Q1

REPORT INFORMATION
  Report Type: 
  Country: None (occurrence: None)
  Receive Date: 20080204
  Receipt Date: 20080201
  Transmission Date: 20080703
  Serious: Yes (Other)
  Sender: FDA-Public Use
  Company Number: US-BRISTOL-MYERS SQUIBB COMPANY-14062350

PATIENT
  Age: 38 Year
  Sex: Male
  Weight: 94 kg

DRUGS (4)
  1. ABILIFY [Suspect]
     Indication: POST-TRAUMATIC STRESS DISORDER
     Route: 048
     Dates: start: 20070101, end: 20080118
  2. NEXIUM [Concomitant]
  3. CYMBALTA [Concomitant]
  4. LORAZEPAM [Concomitant]

REACTIONS (2)
  - LOCALISED INFECTION [None]
  - TYPE 2 DIABETES MELLITUS [None]
